FAERS Safety Report 8450674-3 (Version None)
Quarter: 2012Q2

REPORT INFORMATION
  Report Type: 
  Country: None (occurrence: None)
  Receive Date: 20120620
  Receipt Date: 20120615
  Transmission Date: 20120825
  Serious: Yes (Other)
  Sender: FDA-Public Use
  Company Number: US-PFIZER INC-2012145182

PATIENT
  Sex: Female
  Weight: 65.76 kg

DRUGS (3)
  1. METFORMIN HYDROCHLORIDE [Suspect]
     Indication: DIABETES MELLITUS
     Dosage: UNK
     Dates: start: 19900101
  2. LIPITOR [Suspect]
     Indication: BLOOD CHOLESTEROL ABNORMAL
     Dosage: UNK
     Route: 048
  3. GLIMEPIRIDE [Suspect]
     Indication: DIABETES MELLITUS
     Dosage: UNK
     Dates: start: 19900101

REACTIONS (6)
  - DRUG INEFFECTIVE [None]
  - SYNCOPE [None]
  - BLOOD GLUCOSE DECREASED [None]
  - URTICARIA [None]
  - WEIGHT DECREASED [None]
  - FALL [None]
